FAERS Safety Report 9970265 (Version 2)
Quarter: 2014Q2

REPORT INFORMATION
  Report Type: Spontaneous
  Country: US (occurrence: US)
  Receive Date: 20140306
  Receipt Date: 20140429
  Transmission Date: 20141212
  Serious: Yes (Hospitalization, Other)
  Sender: FDA-Public Use
  Company Number: US-BAYER-2014-032526

PATIENT
  Age: 28 Year
  Sex: Female
  Weight: 56.69 kg

DRUGS (1)
  1. MIRENA [Suspect]
     Indication: CONTRACEPTION
     Dosage: UNK
     Route: 015
     Dates: start: 20130923

REACTIONS (3)
  - Post procedural haemorrhage [None]
  - Pain [None]
  - Device dislocation [Recovered/Resolved]
